FAERS Safety Report 7302465-4 (Version None)
Quarter: 2011Q1

REPORT INFORMATION
  Report Type: 
  Country: None (occurrence: None)
  Receive Date: 20110218
  Receipt Date: 20110215
  Transmission Date: 20110831
  Serious: Yes (Hospitalization, Other)
  Sender: FDA-Public Use
  Company Number: US-PFIZER INC-2010144118

PATIENT
  Sex: Female

DRUGS (4)
  1. CHANTIX [Suspect]
     Indication: SMOKING CESSATION THERAPY
     Dosage: 0.5 MG, 1X/DAY
     Route: 048
     Dates: start: 20100923
  2. CHANTIX [Suspect]
     Dosage: 1 MG, 2X/DAY
     Route: 048
     Dates: end: 20101101
  3. ALPRAZOLAM [Concomitant]
     Dosage: 0.5 MG, AS NEEDED
  4. LEXAPRO [Concomitant]
     Indication: DEPRESSION
     Dosage: 10 MG, 1X/DAY

REACTIONS (1)
  - SUICIDAL IDEATION [None]
